FAERS Safety Report 9436855 (Version 1)
Quarter: 2013Q3

REPORT INFORMATION
  Report Type: Spontaneous
  Country: US (occurrence: US)
  Receive Date: 20130802
  Receipt Date: 20130802
  Transmission Date: 20140515
  Serious: No
  Sender: FDA-Public Use
  Company Number: US-PFIZER INC-2013223308

PATIENT
  Age: 59 Year
  Sex: Female
  Weight: 70.75 kg

DRUGS (1)
  1. ADVIL CONGESTION RELIEF [Suspect]
     Indication: SINUS DISORDER
     Dosage: UNK, ONCE A DAY
     Route: 048
     Dates: start: 20130725, end: 201307

REACTIONS (11)
  - Drug dose omission [Unknown]
  - Hypersensitivity [Unknown]
  - Urticaria [Unknown]
  - Erythema [Unknown]
  - Nasal discomfort [Unknown]
  - Blister [Unknown]
  - Hyperhidrosis [Unknown]
  - Scratch [Unknown]
  - Headache [Unknown]
  - Rash [Unknown]
  - Pruritus [Unknown]
